FAERS Safety Report 9110521 (Version 1)
Quarter: 2013Q1

REPORT INFORMATION
  Report Type: Spontaneous
  Country: US (occurrence: US)
  Receive Date: 20130219
  Receipt Date: 20130219
  Transmission Date: 20140127
  Serious: No
  Sender: FDA-Public Use
  Company Number: US-BRACCO-008743

PATIENT
  Age: 59 Year
  Sex: Female

DRUGS (3)
  1. ISOVUE 370 [Suspect]
     Indication: FLANK PAIN
     Dates: start: 20120911, end: 20120911
  2. ISOVUE 370 [Suspect]
     Indication: COMPUTERISED TOMOGRAM
     Dates: start: 20120911, end: 20120911
  3. ISOVUE 370 [Suspect]
     Indication: HAEMATURIA
     Dates: start: 20120911, end: 20120911

REACTIONS (2)
  - Dysphagia [Recovered/Resolved]
  - Paraesthesia oral [Recovered/Resolved]
